FAERS Safety Report 13292909 (Version 1)
Quarter: 2017Q1

REPORT INFORMATION
  Report Type: Spontaneous
  Country: FR (occurrence: FR)
  Receive Date: 20170303
  Receipt Date: 20170303
  Transmission Date: 20170428
  Serious: Yes (Hospitalization)
  Sender: FDA-Public Use
  Company Number: FR-BAYER-2017-040994

PATIENT
  Age: 71 Year
  Sex: Male

DRUGS (20)
  1. FUROSEMIDE [FUROSEMIDE] [Concomitant]
     Active Substance: FUROSEMIDE
  2. NEFOPAM [Concomitant]
     Active Substance: NEFOPAM
     Dosage: UNK
     Dates: start: 20161202, end: 20170119
  3. PANTOPRAZOLE [Suspect]
     Active Substance: PANTOPRAZOLE SODIUM
     Dosage: UNK
     Route: 042
     Dates: start: 20161225
  4. SYMBICORT [Suspect]
     Active Substance: BUDESONIDE\FORMOTEROL FUMARATE DIHYDRATE
     Dosage: 1 DF, QD
     Route: 055
     Dates: start: 20161220, end: 20170119
  5. PIPERACILLIN AND TAZOBACTAM [Suspect]
     Active Substance: PIPERACILLIN SODIUM\TAZOBACTAM SODIUM
     Indication: SKIN INFECTION
     Dosage: 1 DF, TID
     Route: 042
     Dates: start: 20161204, end: 20170130
  6. LOVENOX [Concomitant]
     Active Substance: ENOXAPARIN SODIUM
  7. POLARAMINE [Concomitant]
     Active Substance: DEXCHLORPHENIRAMINE MALEATE
  8. ULTRAVIST [Suspect]
     Active Substance: IOPROMIDE
     Indication: COMPUTERISED TOMOGRAM THORAX
     Dosage: UNK, ONCE
     Route: 042
     Dates: start: 20170116, end: 20170116
  9. PRIMPERAN [Suspect]
     Active Substance: METOCLOPRAMIDE HYDROCHLORIDE
     Dosage: 10 MG, TID
     Route: 048
     Dates: start: 20161224, end: 20170119
  10. TRAMADOL. [Suspect]
     Active Substance: TRAMADOL
     Dosage: 2 DF, QID
     Route: 048
     Dates: start: 20161201, end: 20170119
  11. LOPERAMIDE [Concomitant]
     Active Substance: LOPERAMIDE
  12. QUESTRAN [Suspect]
     Active Substance: CHOLESTYRAMINE
     Dosage: 1 DF, QD
     Route: 048
     Dates: start: 20161216, end: 20170119
  13. CUBICIN [Suspect]
     Active Substance: DAPTOMYCIN
     Dosage: 800 MG, QD
     Route: 042
     Dates: start: 20170110, end: 20170201
  14. LANTUS [Concomitant]
     Active Substance: INSULIN GLARGINE
  15. HIDRASEC [Suspect]
     Active Substance: RACECADOTRIL
     Dosage: 100 MG, TID
     Route: 048
     Dates: start: 20161209, end: 20170119
  16. PANTOPRAZOLE [Suspect]
     Active Substance: PANTOPRAZOLE SODIUM
     Dosage: UNK
     Route: 048
     Dates: end: 20170119
  17. DUPHALAC [Concomitant]
     Active Substance: LACTULOSE
  18. KARDEGIC [Concomitant]
     Active Substance: ASPIRIN LYSINE
  19. DIFFU K [Concomitant]
     Active Substance: POTASSIUM CHLORIDE
  20. UMULINE [Concomitant]
     Active Substance: INSULIN HUMAN

REACTIONS (2)
  - Diffuse alveolar damage [Not Recovered/Not Resolved]
  - Dyspnoea [Not Recovered/Not Resolved]

NARRATIVE: CASE EVENT DATE: 20170117
